FAERS Safety Report 13895577 (Version 1)
Quarter: 2017Q3

REPORT INFORMATION
  Report Type: Spontaneous
  Country: US (occurrence: US)
  Receive Date: 20170819
  Receipt Date: 20170819
  Transmission Date: 20171127
  Serious: No
  Sender: FDA-Public Use
  Company Number: None

PATIENT
  Age: 21 Year
  Sex: Female
  Weight: 50.4 kg

DRUGS (4)
  1. DAILY MULTIVITAMINS [Concomitant]
  2. PROPRANOLOL HCL ER 24HR 80 MG CAP BREC [Suspect]
     Active Substance: PROPRANOLOL HYDROCHLORIDE
     Indication: MIGRAINE PROPHYLAXIS
     Dosage: ?          QUANTITY:30 CAPSULE(S);?
     Route: 048
     Dates: start: 20170731, end: 20170817
  3. AMITRYPTINE [Concomitant]
  4. MAGNESIUM [Concomitant]
     Active Substance: MAGNESIUM

REACTIONS (4)
  - Hypoaesthesia [None]
  - Paraesthesia [None]
  - Peripheral coldness [None]
  - Nail discolouration [None]

NARRATIVE: CASE EVENT DATE: 20170817
